FAERS Safety Report 15749087 (Version 7)
Quarter: 2019Q3

REPORT INFORMATION
  Report Type: Report from Study
  Country: None (occurrence: CO)
  Receive Date: 20181221
  Receipt Date: 20190921
  Transmission Date: 20191004
  Serious: Yes (Hospitalization, Other)
  Sender: FDA-Public Use
  Company Number: CO-ABBVIE-18K-036-2600398-00

PATIENT
  Age: 72 Year
  Sex: Female
  Weight: 66 kg

DRUGS (2)
  1. HUMIRA [Suspect]
     Active Substance: ADALIMUMAB
     Indication: RHEUMATOID ARTHRITIS
     Route: 058
     Dates: start: 20081107
  2. HUMIRA [Suspect]
     Active Substance: ADALIMUMAB
     Indication: RHEUMATOID ARTHRITIS
     Route: 058

REACTIONS (11)
  - Cardiac failure [Not Recovered/Not Resolved]
  - Respiratory distress [Unknown]
  - Asphyxia [Unknown]
  - Rib fracture [Unknown]
  - Oropharyngeal plaque [Recovered/Resolved]
  - Fatigue [Not Recovered/Not Resolved]
  - Lung neoplasm malignant [Unknown]
  - Respiratory tract congestion [Not Recovered/Not Resolved]
  - Breath sounds abnormal [Unknown]
  - Pulmonary mass [Unknown]
  - Fall [Unknown]

NARRATIVE: CASE EVENT DATE: 201809
